FAERS Safety Report 4678858-0 (Version None)
Quarter: 2005Q2

REPORT INFORMATION
  Report Type: 
  Country: None (occurrence: None)
  Receive Date: 20050531
  Receipt Date: 20050520
  Transmission Date: 20051028
  Serious: Yes (Hospitalization, Other)
  Sender: FDA-Public Use
  Company Number: USA-2003-0010633

PATIENT
  Age: 41 Year
  Sex: Female
  Weight: 56.7 kg

DRUGS (15)
  1. OXYCONTIN [Suspect]
     Dosage: SEE IMAGE
     Route: 048
     Dates: start: 20020513, end: 20020529
  2. OXYCONTIN [Suspect]
     Dosage: SEE IMAGE
     Route: 048
     Dates: start: 20020529, end: 20020620
  3. OXYCONTIN [Suspect]
     Dosage: SEE IMAGE
     Route: 048
     Dates: start: 20020620, end: 20020711
  4. OXYCONTIN [Suspect]
     Dosage: SEE IMAGE
     Route: 048
     Dates: start: 20020711, end: 20020731
  5. OXYCONTIN [Suspect]
     Dosage: SEE IMAGE
     Route: 048
     Dates: start: 20020731, end: 20020828
  6. OXYCODONE HCL [Concomitant]
  7. VIOXX [Concomitant]
  8. SOMA [Concomitant]
  9. ROXICODONE [Concomitant]
  10. WELLBUTRIN (AMFEBIUTAMONE HYDROCHLORIDE) [Concomitant]
  11. EFFEXOR [Concomitant]
  12. FERROUS SULFATE TAB [Concomitant]
  13. IMITREX [Concomitant]
  14. NORTRIPTYLINE HCL [Concomitant]
  15. ELAVIL [Concomitant]

REACTIONS (45)
  - ACUTE SINUSITIS [None]
  - AMNESIA [None]
  - ANXIETY [None]
  - ARTHRALGIA [None]
  - ASTHENIA [None]
  - ATTENTION DEFICIT/HYPERACTIVITY DISORDER [None]
  - BALANCE DISORDER [None]
  - BASAL CELL CARCINOMA [None]
  - CONDITION AGGRAVATED [None]
  - COUGH [None]
  - DEMENTIA [None]
  - DEPENDENCE [None]
  - DEPRESSION [None]
  - DIARRHOEA [None]
  - DIZZINESS [None]
  - DRUG DEPENDENCE [None]
  - DRUG TOLERANCE [None]
  - DRUG WITHDRAWAL SYNDROME [None]
  - DYSPHONIA [None]
  - DYSPNOEA [None]
  - EAR PAIN [None]
  - EMOTIONAL DISTRESS [None]
  - ERYTHEMA [None]
  - HALLUCINATION [None]
  - HYPOAESTHESIA [None]
  - INSOMNIA [None]
  - MOTOR DYSFUNCTION [None]
  - MUSCLE SPASMS [None]
  - NASAL SINUS DRAINAGE [None]
  - NECK PAIN [None]
  - PAIN [None]
  - PAIN IN EXTREMITY [None]
  - PARAESTHESIA [None]
  - POST PROCEDURAL NAUSEA [None]
  - POST PROCEDURAL PAIN [None]
  - PROCEDURAL SITE REACTION [None]
  - RASH PRURITIC [None]
  - SINUS CONGESTION [None]
  - SINUS HEADACHE [None]
  - SINUSITIS [None]
  - THERAPY NON-RESPONDER [None]
  - TINNITUS [None]
  - UPPER RESPIRATORY TRACT INFECTION [None]
  - URINARY RETENTION [None]
  - URTICARIA [None]
